FAERS Safety Report 20524513 (Version 1)
Quarter: 2022Q1

REPORT INFORMATION
  Report Type: Spontaneous
  Country: TR (occurrence: TR)
  Receive Date: 20220228
  Receipt Date: 20220228
  Transmission Date: 20220424
  Serious: Yes (Hospitalization, Other)
  Sender: FDA-Public Use
  Company Number: TR-WOCKHARDT BIO AG-2022WBA000024

PATIENT
  Age: 17 Year
  Sex: Male

DRUGS (3)
  1. LITHIUM HYDROXIDE [Suspect]
     Active Substance: LITHIUM HYDROXIDE
     Indication: Bipolar I disorder
     Dosage: 1200 MILLIGRAM, QD
     Route: 065
  2. OLANZAPINE [Concomitant]
     Active Substance: OLANZAPINE
     Indication: Autism spectrum disorder
     Dosage: 10 MILLIGRAM, QD
     Route: 065
  3. BIPERIDEN [Concomitant]
     Active Substance: BIPERIDEN
     Indication: Dystonia
     Dosage: 2 MILLIGRAM, QD
     Route: 065

REACTIONS (5)
  - Dysphagia [Recovered/Resolved]
  - Toxicity to various agents [Recovered/Resolved]
  - Dyspnoea [Recovered/Resolved]
  - Paraesthesia [Recovered/Resolved]
  - Tremor [Recovered/Resolved]
